FAERS Safety Report 19081735 (Version 6)
Quarter: 2021Q2

REPORT INFORMATION
  Report Type: Report from Study
  Country: DE (occurrence: DE)
  Receive Date: 20210401
  Receipt Date: 20210525
  Transmission Date: 20210717
  Serious: Yes (Hospitalization)
  Sender: FDA-Public Use
  Company Number: DE-ROCHE-2795785

PATIENT
  Age: 75 Year
  Sex: Female
  Weight: 59 kg

DRUGS (15)
  1. OBINUTUZUMAB. [Suspect]
     Active Substance: OBINUTUZUMAB
     Indication: FOLLICULAR LYMPHOMA
     Dosage: DATE OF MOST RECENT DOSE OF OBINUTUZUMAB PRIOR TO TUMOR LYSIS SYNDROME ONSET: 08/MAR/2021.?DATE OF M
     Route: 041
     Dates: start: 20210225, end: 20210308
  2. PREDNISOLONE. [Concomitant]
     Active Substance: PREDNISOLONE
     Indication: PREMEDICATION
     Dates: start: 20210225
  3. TELMISARTAN. [Concomitant]
     Active Substance: TELMISARTAN
     Indication: HYPERTENSION
     Dates: start: 200401
  4. HYGROTON [Concomitant]
     Active Substance: CHLORTHALIDONE
     Indication: HYPERTENSION
     Dates: start: 2015
  5. CLEMASTIN [Concomitant]
     Active Substance: CLEMASTINE
     Indication: PREMEDICATION
     Dates: start: 20210225
  6. COPANLISIB. [Suspect]
     Active Substance: COPANLISIB
     Indication: FOLLICULAR LYMPHOMA
     Dosage: DATE OF MOST RECENT DOSE OF COPANLISIB PRIOR TO TUMOR LYSIS SYNDROME ONSET: 08/MAR/2021?DATE OF MOST
     Route: 041
     Dates: start: 20210225, end: 20210308
  7. CIMETIDIN [Concomitant]
     Indication: PREMEDICATION
     Dates: start: 20210225
  8. CALCIUM VERLA [Concomitant]
     Active Substance: CALCIUM
     Dates: start: 2015
  9. ATORVASTATIN [Concomitant]
     Active Substance: ATORVASTATIN
     Indication: HYPERCHOLESTEROLAEMIA
     Dates: start: 2015
  10. ACICLOVIR [Concomitant]
     Active Substance: ACYCLOVIR
     Dates: start: 20210225
  11. AMLODIPIN [Concomitant]
     Active Substance: AMLODIPINE BESYLATE
     Indication: CORONARY ARTERY DISEASE
     Dates: start: 2015
  12. ASA [Concomitant]
     Active Substance: ASPIRIN
     Indication: CORONARY ARTERY DISEASE
     Dates: start: 2015
  13. PARACETAMOL [Concomitant]
     Active Substance: ACETAMINOPHEN
     Indication: PREMEDICATION
     Dates: start: 20210225
  14. KALINOR [Concomitant]
     Indication: HYPOKALAEMIA
     Dates: start: 20210317
  15. COTRIM FORTE [Concomitant]
     Active Substance: SULFAMETHOXAZOLE\TRIMETHOPRIM
     Dates: start: 20210225

REACTIONS (2)
  - Tumour lysis syndrome [Recovered/Resolved]
  - Sepsis [Recovered/Resolved]

NARRATIVE: CASE EVENT DATE: 20210318
